FAERS Safety Report 4676322-6 (Version None)
Quarter: 2005Q2

REPORT INFORMATION
  Report Type: 
  Country: None (occurrence: None)
  Receive Date: 20050527
  Receipt Date: 20050222
  Transmission Date: 20051028
  Serious: No
  Sender: FDA-Public Use
  Company Number: US-GLAXOSMITHKLINE-A0546729A

PATIENT
  Age: 36 Year
  Sex: Female

DRUGS (2)
  1. WELLBUTRIN XL [Suspect]
     Indication: DEPRESSION
     Dosage: 300MG PER DAY
     Route: 048
     Dates: start: 20050128, end: 20050218
  2. ANTIBIOTIC [Concomitant]

REACTIONS (5)
  - CHILLS [None]
  - DIZZINESS [None]
  - HEADACHE [None]
  - HYPERHIDROSIS [None]
  - VOMITING [None]
